FAERS Safety Report 16935864 (Version 2)
Quarter: 2019Q4

REPORT INFORMATION
  Report Type: Report from Study
  Country: IT (occurrence: IT)
  Receive Date: 20191018
  Receipt Date: 20191124
  Transmission Date: 20200122
  Serious: Yes (Death, Other)
  Sender: FDA-Public Use
  Company Number: IT-BRISTOL-MYERS SQUIBB COMPANY-BMS-2019-099191

PATIENT
  Age: 65 Year
  Sex: Male

DRUGS (2)
  1. IPILIMUMAB [Suspect]
     Active Substance: IPILIMUMAB
     Indication: METASTATIC RENAL CELL CARCINOMA
     Dosage: 77 MILLIGRAM
     Route: 065
     Dates: start: 20190928, end: 20190928
  2. NIVOLUMAB [Suspect]
     Active Substance: NIVOLUMAB
     Indication: METASTATIC RENAL CELL CARCINOMA
     Dosage: 231 MILLIGRAM
     Route: 065
     Dates: start: 20190928, end: 20190928

REACTIONS (1)
  - Death [Fatal]

NARRATIVE: CASE EVENT DATE: 20191011
